FAERS Safety Report 13242764 (Version 1)
Quarter: 2017Q1

REPORT INFORMATION
  Report Type: Spontaneous
  Country: US (occurrence: US)
  Receive Date: 20170217
  Receipt Date: 20170217
  Transmission Date: 20170428
  Serious: No
  Sender: FDA-Public Use
  Company Number: US-BAYER-2017-018384

PATIENT
  Age: 86 Year
  Sex: Male
  Weight: 81 kg

DRUGS (5)
  1. BAYER LOW DOSE [Concomitant]
     Active Substance: ASPIRIN
  2. MIRALAX [Suspect]
     Active Substance: POLYETHYLENE GLYCOL 3350
     Indication: INTESTINAL DILATATION
     Dosage: 2 DF, UNK
     Route: 048
     Dates: end: 20170129
  3. NEXIUM [Concomitant]
     Active Substance: ESOMEPRAZOLE MAGNESIUM
  4. DILTIAZEM. [Concomitant]
     Active Substance: DILTIAZEM
  5. MIRALAX [Suspect]
     Active Substance: POLYETHYLENE GLYCOL 3350
     Indication: INTESTINAL DILATATION
     Dosage: 1 DF, UNK
     Route: 048
     Dates: start: 201604

REACTIONS (6)
  - Product use issue [Unknown]
  - Poor quality drug administered [Unknown]
  - Product taste abnormal [Unknown]
  - Frequent bowel movements [Recovered/Resolved]
  - Product odour abnormal [Unknown]
  - Off label use [Unknown]

NARRATIVE: CASE EVENT DATE: 2016
